FAERS Safety Report 8679160 (Version 2)
Quarter: 2015Q3

REPORT INFORMATION
  Report Type: Spontaneous
  Country: US (occurrence: US)
  Receive Date: 20120724
  Receipt Date: 20150724
  Transmission Date: 20151125
  Serious: No
  Sender: FDA-Public Use
  Company Number: US-PFIZER INC-2012175832

PATIENT
  Sex: Male

DRUGS (1)
  1. AVINZA [Suspect]
     Active Substance: MORPHINE SULFATE
     Indication: NECK SURGERY
     Dosage: 180 MG (TWO 90MG CAPSULES ), 1X/DAY
     Route: 048
     Dates: start: 2005

REACTIONS (4)
  - Migraine [Not Recovered/Not Resolved]
  - Weight decreased [Unknown]
  - Feeling hot [Not Recovered/Not Resolved]
  - Drug ineffective [Unknown]

NARRATIVE: CASE EVENT DATE: 2012
